FAERS Safety Report 4463058-X (Version None)
Quarter: 2004Q3

REPORT INFORMATION
  Report Type: 
  Country: None (occurrence: None)
  Receive Date: 20040930
  Receipt Date: 20040922
  Transmission Date: 20050211
  Serious: Yes (Hospitalization)
  Sender: FDA-Public Use
  Company Number: PHEH2004US10185

PATIENT
  Age: 9 Year
  Sex: Male

DRUGS (3)
  1. TRILEPTAL [Suspect]
     Indication: BIPOLAR DISORDER
     Dosage: 150 MG, BID
     Route: 048
     Dates: start: 20030401
  2. LITHIUM [Concomitant]
  3. ABILIFY [Concomitant]

REACTIONS (5)
  - BLOOD IRON ABNORMAL [None]
  - DISORIENTATION [None]
  - DRUG INEFFECTIVE FOR UNAPPROVED INDICATION [None]
  - HAEMATURIA [None]
  - THYROID FUNCTION TEST ABNORMAL [None]
